FAERS Safety Report 7522087-X (Version None)
Quarter: 2011Q2

REPORT INFORMATION
  Report Type: 
  Country: None (occurrence: None)
  Receive Date: 20110603
  Receipt Date: 20110601
  Transmission Date: 20111010
  Serious: Yes (Other)
  Sender: FDA-Public Use
  Company Number: DE-PFIZER INC-2011119671

PATIENT
  Age: 82 Year
  Sex: Male

DRUGS (2)
  1. PANTOPRAZOLE [Suspect]
     Indication: GASTRIC ULCER
     Dosage: 20 MG, 1X/DAY
     Dates: start: 20110423
  2. NEBIVOLOL HCL [Concomitant]

REACTIONS (3)
  - AZOTAEMIA [None]
  - BLOOD CREATININE INCREASED [None]
  - BLOOD UREA INCREASED [None]
